FAERS Safety Report 16030955 (Version 2)
Quarter: 2019Q2

REPORT INFORMATION
  Report Type: Spontaneous
  Country: US (occurrence: US)
  Receive Date: 20190304
  Receipt Date: 20190625
  Transmission Date: 20190711
  Serious: No
  Sender: FDA-Public Use
  Company Number: US-PFIZER INC-2019092942

PATIENT
  Age: 62 Year
  Sex: Male

DRUGS (4)
  1. EUCRISA [Suspect]
     Active Substance: CRISABOROLE
     Indication: RASH
     Dosage: UNK
     Dates: start: 201901
  2. EUCRISA [Suspect]
     Active Substance: CRISABOROLE
     Indication: RASH
  3. EUCRISA [Suspect]
     Active Substance: CRISABOROLE
     Indication: SKIN DISORDER
     Dosage: UNK, 2X/DAY
     Dates: start: 201812
  4. EUCRISA [Suspect]
     Active Substance: CRISABOROLE
     Indication: RASH

REACTIONS (1)
  - Therapeutic product effect incomplete [Not Recovered/Not Resolved]

NARRATIVE: CASE EVENT DATE: 201901
